FAERS Safety Report 5697619-7 (Version None)
Quarter: 2008Q2

REPORT INFORMATION
  Report Type: 
  Country: None (occurrence: None)
  Receive Date: 20080408
  Receipt Date: 20080401
  Transmission Date: 20081010
  Serious: No
  Sender: FDA-Public Use
  Company Number: US-ROCHE-539328

PATIENT
  Sex: Female

DRUGS (2)
  1. ACCUTANE [Suspect]
     Indication: DRUG USE FOR UNKNOWN INDICATION
     Dosage: PRESCRIPTION REPORTED FILLED AS SIXTY 40 MG CAPSULES, 30 DAY SUPPLY ON 07 OCTOBER 2007.
     Route: 065
     Dates: start: 20071007
  2. CLARAVIS [Suspect]
     Indication: DRUG USE FOR UNKNOWN INDICATION
     Dosage: PRESCRIPTION PROCESSED 18 JUNE 2007 AND ALSO REPORTED FILLED AS SIXTY 40 MG CAPSULES, 30 DAY SUPPLY+
     Route: 065
     Dates: start: 20070618

REACTIONS (2)
  - ABORTION INDUCED [None]
  - NO ADVERSE EVENT [None]
